FAERS Safety Report 7465299 (Version 5)
Quarter: 2013Q2

REPORT INFORMATION
  Report Type: Spontaneous
  Country: US (occurrence: US)
  Receive Date: 20100712
  Receipt Date: 20130418
  Transmission Date: 20140414
  Serious: Yes (Hospitalization)
  Sender: FDA-Public Use
  Company Number: US-BAYER-201027041NA

PATIENT
  Age: 27 Year
  Sex: Female
  Weight: 72.56 kg

DRUGS (7)
  1. YAZ [Suspect]
     Indication: CONTRACEPTION
     Dosage: UNK
     Route: 048
     Dates: start: 200608, end: 20060915
  2. YAZ [Suspect]
     Indication: CONTRACEPTION
     Dosage: UNK
     Route: 048
     Dates: start: 20060606, end: 20060906
  3. ZOLOFT [Concomitant]
     Dosage: 100 MG, UNK
  4. SERTRALINE [Concomitant]
  5. TYLENOL [Concomitant]
     Indication: PAIN
     Dosage: 325 MG, PRN
     Route: 048
  6. DILAUDID [Concomitant]
     Indication: PAIN IN EXTREMITY
  7. DILAUDID [Concomitant]
     Indication: OEDEMA PERIPHERAL

REACTIONS (11)
  - Deep vein thrombosis [None]
  - Thrombophlebitis superficial [None]
  - Pain in extremity [None]
  - Oedema peripheral [None]
  - Gait disturbance [None]
  - Iliac vein occlusion [None]
  - Oedema peripheral [None]
  - Limb discomfort [None]
  - Anxiety [None]
  - Post thrombotic syndrome [None]
  - Limb discomfort [None]
